FAERS Safety Report 21466323 (Version 1)
Quarter: 2022Q4

REPORT INFORMATION
  Report Type: Spontaneous
  Country: US (occurrence: US)
  Receive Date: 20221017
  Receipt Date: 20221017
  Transmission Date: 20230113
  Serious: Yes (Life-Threatening, Hospitalization, Congenital Anomaly, Other)
  Sender: FDA-Public Use
  Company Number: US-SLATE RUN PHARMACEUTICALS-22US001376

PATIENT

DRUGS (18)
  1. METOPROLOL SUCCINATE [Suspect]
     Active Substance: METOPROLOL SUCCINATE
     Indication: Maternal exposure timing unspecified
     Dosage: UNK
  2. OXYGEN [Concomitant]
     Active Substance: OXYGEN
     Indication: Maternal exposure during pregnancy
  3. REMDESIVIR [Concomitant]
     Active Substance: REMDESIVIR
     Indication: Maternal exposure timing unspecified
     Dosage: 100 MILLIGRAM, QD
     Route: 042
  4. REMDESIVIR [Concomitant]
     Active Substance: REMDESIVIR
     Dosage: 200 MILLIGRAM, QD
     Route: 042
  5. DEXAMETHASONE [Concomitant]
     Active Substance: DEXAMETHASONE
     Indication: Maternal exposure timing unspecified
     Dosage: 6 MILLIGRAM, QD
  6. NOREPINEPHRINE [Concomitant]
     Active Substance: NOREPINEPHRINE
     Indication: Maternal exposure timing unspecified
  7. EPOPROSTENOL [Concomitant]
     Active Substance: EPOPROSTENOL
     Indication: Maternal exposure timing unspecified
  8. VASOPRESSIN [Concomitant]
     Active Substance: VASOPRESSIN
     Indication: Maternal exposure timing unspecified
  9. METHYLPREDNISOLONE [Concomitant]
     Active Substance: METHYLPREDNISOLONE
     Indication: Maternal exposure timing unspecified
  10. UNSPECIFIED INGREDIENT [Concomitant]
     Active Substance: UNSPECIFIED INGREDIENT
     Indication: Maternal exposure timing unspecified
  11. HUMAN RED BLOOD CELL [Concomitant]
     Active Substance: HUMAN RED BLOOD CELL
     Indication: Maternal exposure timing unspecified
  12. CRYOPRECIPITATED ANTIHEMOPHILIC FACTOR (HUMAN) [Concomitant]
     Active Substance: CRYOPRECIPITATED ANTIHEMOPHILIC FACTOR (HUMAN)
     Indication: Maternal exposure timing unspecified
  13. AMIODARONE [Concomitant]
     Active Substance: AMIODARONE
     Indication: Maternal exposure timing unspecified
  14. PROPOFOL [Concomitant]
     Active Substance: PROPOFOL
     Indication: Maternal exposure timing unspecified
  15. FENTANYL [Concomitant]
     Active Substance: FENTANYL
     Indication: Maternal exposure timing unspecified
  16. CISATRACURIUM [Concomitant]
     Active Substance: CISATRACURIUM
     Indication: Maternal exposure timing unspecified
  17. NITRIC OXIDE [Concomitant]
     Active Substance: NITRIC OXIDE
     Indication: Maternal exposure timing unspecified
  18. HEPARIN [Concomitant]
     Active Substance: HEPARIN SODIUM
     Indication: Maternal exposure timing unspecified

REACTIONS (13)
  - Neonatal respiratory distress syndrome [Unknown]
  - Premature baby [Unknown]
  - Apgar score low [Unknown]
  - Infantile apnoea [Unknown]
  - Tonic clonic movements [Recovered/Resolved]
  - Patent ductus arteriosus [Unknown]
  - Bronchopulmonary dysplasia [Unknown]
  - Bone disorder [Unknown]
  - Retinopathy of prematurity [Unknown]
  - Osteomyelitis [Unknown]
  - Coagulopathy [Recovered/Resolved]
  - Thrombocytopenia [Recovered/Resolved]
  - Foetal exposure during pregnancy [Unknown]
